FAERS Safety Report 14766979 (Version 1)
Quarter: 2018Q2

REPORT INFORMATION
  Report Type: Report from Study
  Country: US (occurrence: US)
  Receive Date: 20180417
  Receipt Date: 20180417
  Transmission Date: 20180711
  Serious: Yes (Other)
  Sender: FDA-Public Use
  Company Number: US-ACCORD-065542

PATIENT
  Age: 37 Year
  Sex: Male

DRUGS (2)
  1. MYCOPHENOLIC ACID. [Suspect]
     Active Substance: MYCOPHENOLIC ACID
     Indication: CHORIORETINITIS
  2. CICLOSPORIN [Concomitant]
     Active Substance: CYCLOSPORINE
     Indication: CHORIORETINITIS

REACTIONS (4)
  - Prostatitis [Unknown]
  - Hepatic enzyme increased [Unknown]
  - Off label use [Unknown]
  - Urethritis [Unknown]
